FAERS Safety Report 10527971 (Version 1)
Quarter: 2014Q4

REPORT INFORMATION
  Report Type: Spontaneous
  Country: HR (occurrence: HR)
  Receive Date: 20141020
  Receipt Date: 20141020
  Transmission Date: 20150528
  Serious: Yes (Other)
  Sender: FDA-Public Use
  Company Number: HR-MYLANLABS-2014M1007509

PATIENT

DRUGS (3)
  1. FLUPHENAZINE [Concomitant]
     Active Substance: FLUPHENAZINE
     Indication: SCHIZOPHRENIA, CATATONIC TYPE
     Route: 065
  2. CLOZAPINE. [Suspect]
     Active Substance: CLOZAPINE
     Indication: SCHIZOPHRENIA, CATATONIC TYPE
     Dosage: 300-600 MG/DAY
     Route: 065
  3. PROMAZINE [Concomitant]
     Active Substance: PROMAZINE
     Indication: SCHIZOPHRENIA, CATATONIC TYPE
     Route: 065

REACTIONS (1)
  - Pancytopenia [Recovered/Resolved]
